FAERS Safety Report 7038451-1 (Version None)
Quarter: 2010Q4

REPORT INFORMATION
  Report Type: 
  Country: None (occurrence: None)
  Receive Date: 20101011
  Receipt Date: 20100604
  Transmission Date: 20110411
  Serious: No
  Sender: FDA-Public Use
  Company Number: US-PFIZER INC-2010070488

PATIENT
  Sex: Female
  Weight: 136.5 kg

DRUGS (8)
  1. NEURONTIN [Suspect]
     Indication: FIBROMYALGIA
     Dosage: 600 MG (TWO 300MG), AT ONCE
  2. NEURONTIN [Suspect]
     Dosage: 100 MG, 1X/DAY
     Dates: start: 20100528
  3. DARIFENACIN [Concomitant]
     Indication: CYSTITIS INTERSTITIAL
     Dosage: UNK, TWO PILLS AT ONCE
  4. IBUPROFEN [Concomitant]
     Dosage: UNK
  5. WELLBUTRIN [Concomitant]
     Dosage: UNK, TWO PILLS AT ONCE
  6. CLARITIN [Concomitant]
     Dosage: UNK
  7. DARVOCET [Concomitant]
     Dosage: UNK
  8. FLEXERIL [Concomitant]
     Dosage: UNK

REACTIONS (1)
  - WEIGHT INCREASED [None]
